FAERS Safety Report 12892278 (Version 9)
Quarter: 2017Q2

REPORT INFORMATION
  Report Type: Spontaneous
  Country: US (occurrence: US)
  Receive Date: 20161028
  Receipt Date: 20170620
  Transmission Date: 20170830
  Serious: Yes (Death, Congenital Anomaly, Other)
  Sender: FDA-Public Use
  Company Number: PHEH2016US028017

PATIENT
  Sex: Female

DRUGS (4)
  1. ZOFRAN ODT [Suspect]
     Active Substance: ONDANSETRON HYDROCHLORIDE
     Indication: FOETAL EXPOSURE DURING PREGNANCY
     Route: 064
  2. ZOFRAN [Suspect]
     Active Substance: ONDANSETRON HYDROCHLORIDE
     Indication: FOETAL EXPOSURE DURING PREGNANCY
     Dosage: MOTHER DOSE: 1 TO 2 DF, PRN
     Route: 064
  3. ONDANSETRON DR REDDY [Suspect]
     Active Substance: ONDANSETRON
     Indication: FOETAL EXPOSURE DURING PREGNANCY
     Dosage: MOTHER DOSE: 4 MG, Q8H
     Route: 064
  4. ONDANSETRON DR REDDY [Suspect]
     Active Substance: ONDANSETRON
     Indication: FOETAL EXPOSURE DURING PREGNANCY
     Dosage: MOTHER DOSE: 4 MG, Q8H
     Route: 064

REACTIONS (62)
  - Cardiac ventricular disorder [Unknown]
  - Cardiogenic shock [Unknown]
  - Pulmonary valve stenosis [Unknown]
  - Cardiomegaly [Unknown]
  - Infantile apnoea [Unknown]
  - Anuria [Unknown]
  - Bacterial vulvovaginitis [Unknown]
  - Metabolic alkalosis [Unknown]
  - Atrial septal defect [Unknown]
  - Transposition of the great vessels [Unknown]
  - Double outlet right ventricle [Unknown]
  - Left-to-right cardiac shunt [Unknown]
  - Gastrointestinal malformation [Unknown]
  - Cyanosis neonatal [Unknown]
  - Brain injury [Unknown]
  - Acute respiratory failure [Unknown]
  - Acute kidney injury [Unknown]
  - Aortic valve incompetence [Unknown]
  - Azotaemia [Unknown]
  - Pleural effusion [Unknown]
  - Bradycardia neonatal [Unknown]
  - Petechiae [Unknown]
  - Pulmonary valve stenosis congenital [Unknown]
  - Asplenia [Unknown]
  - Fallot^s tetralogy [Unknown]
  - Tricuspid valve incompetence [Unknown]
  - Haemorrhagic cerebral infarction [Unknown]
  - Atrioventricular block complete [Unknown]
  - Periorbital oedema [Unknown]
  - Venous thrombosis [Unknown]
  - Congenital gastric anomaly [Unknown]
  - Heterotaxia [Unknown]
  - Foetal exposure during pregnancy [Unknown]
  - Atelectasis neonatal [Unknown]
  - Sepsis neonatal [Unknown]
  - Pulmonary oedema [Unknown]
  - Lactic acidosis [Unknown]
  - Ascites [Unknown]
  - Thrombophlebitis superficial [Unknown]
  - Ventricular septal defect [Unknown]
  - Pulmonary artery atresia [Unknown]
  - Ventricular dysfunction [Unknown]
  - Cardiac murmur [Unknown]
  - Erythema [Unknown]
  - Oedema [Unknown]
  - Hypothermia neonatal [Unknown]
  - Coagulopathy [Unknown]
  - Heart disease congenital [Unknown]
  - Systemic inflammatory response syndrome [Unknown]
  - Neonatal tachycardia [Unknown]
  - Hypercoagulation [Unknown]
  - Death neonatal [Fatal]
  - Congenital pulmonary valve disorder [Unknown]
  - Patent ductus arteriosus [Unknown]
  - Oesophageal atresia [Unknown]
  - Shunt occlusion [Unknown]
  - Mitral valve incompetence [Unknown]
  - Brain herniation [Unknown]
  - Right ventricular enlargement [Unknown]
  - Oedema genital [Unknown]
  - Hypopnoea [Unknown]
  - Lung hyperinflation [Unknown]
